FAERS Safety Report 23560758 (Version 1)
Quarter: 2024Q1

REPORT INFORMATION
  Report Type: Other
  Country: US (occurrence: US)
  Receive Date: 20240223
  Receipt Date: 20240223
  Transmission Date: 20240409
  Serious: Yes (Hospitalization)
  Sender: FDA-Public Use
  Company Number: US-B.Braun Medical Inc.-2153635

PATIENT
  Age: 62 Year
  Sex: Female
  Weight: 76 kg

DRUGS (5)
  1. LIDOCAINE HYDROCHLORIDE [Suspect]
     Active Substance: LIDOCAINE HYDROCHLORIDE
  2. MIDAZOLAM [Suspect]
     Active Substance: MIDAZOLAM
  3. ROCURONIUM [Suspect]
     Active Substance: ROCURONIUM BROMIDE
  4. PROPOFOL [Suspect]
     Active Substance: PROPOFOL
  5. FENTANYL [Suspect]
     Active Substance: FENTANYL\FENTANYL CITRATE

REACTIONS (1)
  - Vocal cord dysfunction [Recovering/Resolving]
